FAERS Safety Report 10129448 (Version 2)
Quarter: 2014Q2

REPORT INFORMATION
  Report Type: Spontaneous
  Country: RU (occurrence: RU)
  Receive Date: 20140428
  Receipt Date: 20140520
  Transmission Date: 20141212
  Serious: Yes (Hospitalization, Other)
  Sender: FDA-Public Use
  Company Number: RU-ACTELION-A-CH2014-97890

PATIENT
  Age: 71 Year
  Sex: Male
  Weight: 52 kg

DRUGS (3)
  1. TRACLEER [Suspect]
     Indication: PULMONARY ARTERIAL HYPERTENSION
     Dosage: 62.5 MG, BID
     Route: 048
     Dates: start: 20140104, end: 20140220
  2. WARFARIN [Concomitant]
     Dosage: UNK
     Dates: start: 20111128
  3. RIOCIGUAT [Concomitant]

REACTIONS (7)
  - Liver function test abnormal [Recovered/Resolved]
  - Aspartate aminotransferase increased [Recovered/Resolved]
  - Pulmonary arterial hypertension [Unknown]
  - Right ventricular failure [Unknown]
  - Condition aggravated [Unknown]
  - Alanine aminotransferase increased [Recovered/Resolved]
  - Gastritis erosive [Unknown]
